FAERS Safety Report 22875850 (Version 2)
Quarter: 2023Q4

REPORT INFORMATION
  Report Type: Report from Study
  Country: US (occurrence: US)
  Receive Date: 20230829
  Receipt Date: 20231011
  Transmission Date: 20240110
  Serious: Yes (Other)
  Sender: FDA-Public Use
  Company Number: US-GILEAD-2023-0641280

PATIENT
  Sex: Female

DRUGS (1)
  1. AZTREONAM LYSINE [Suspect]
     Active Substance: AZTREONAM LYSINE
     Indication: Illness
     Dosage: 75 MG, TID [1 VIAL VIA ALTERA NEBULIZER THREE TIMES DAILY, CYCLING ONE WEEK ON AND ONE WEEK OFF]
     Route: 055

REACTIONS (2)
  - Pneumonia [Unknown]
  - Off label use [Unknown]
